FAERS Safety Report 9097701 (Version 2)
Quarter: 2013Q2

REPORT INFORMATION
  Report Type: Spontaneous
  Country: DE (occurrence: DE)
  Receive Date: 20130212
  Receipt Date: 20130530
  Transmission Date: 20140414
  Serious: Yes (Hospitalization, Other)
  Sender: FDA-Public Use
  Company Number: DE-SHIRE-ALL1-2013-00669

PATIENT
  Age: 22 Year
  Sex: Male
  Weight: 60 kg

DRUGS (5)
  1. MEZAVANT [Suspect]
     Indication: COLITIS ULCERATIVE
     Dosage: 2400 MG (TWO 1200 MG TABLETS 2 IN 1 DAY), 1X/DAY:QD
     Route: 048
     Dates: start: 201202, end: 20120917
  2. AZATHIOPRINE [Concomitant]
     Indication: COLITIS ULCERATIVE
     Dosage: 150 MG, 1X/DAY:QD (150 MG 1 MORNINGS)
     Route: 048
     Dates: start: 201208
  3. VIGANTOLETTEN [Concomitant]
     Indication: PRODUCT USED FOR UNKNOWN INDICATION
     Dosage: 1000 UNK, 1X/DAY:QD (1000 UNK, 1 MORNINGS)
     Route: 065
  4. CALCIUM EFFERVESCENT [Concomitant]
     Indication: PRODUCT USED FOR UNKNOWN INDICATION
     Dosage: 1 DF, 1X/DAY:QD (CA EFFERVESCENT TABLET 1 MORNINGS)
     Route: 065
  5. AMPHO-MORONAL [Concomitant]
     Indication: PRODUCT USED FOR UNKNOWN INDICATION
     Dosage: UNK, 2X/DAY:BID (3 PIPETTES TWICE DAILY)
     Route: 065

REACTIONS (3)
  - Lung infiltration [Recovering/Resolving]
  - Pericardial effusion [Recovering/Resolving]
  - Microcytic anaemia [Unknown]
